FAERS Safety Report 6237746-9 (Version None)
Quarter: 2009Q2

REPORT INFORMATION
  Report Type: 
  Country: None (occurrence: None)
  Receive Date: 20090618
  Receipt Date: 20090607
  Transmission Date: 20091009
  Serious: Yes (Other)
  Sender: FDA-Public Use
  Company Number: CHPA2009US13162

PATIENT
  Age: 39 Year
  Sex: Female

DRUGS (1)
  1. THERAFLU AND CHEST CONGESTION WITHOUT PSE (NCH)(GUAIFENESIN, PARACETAM [Suspect]
     Indication: COUGH
     Dosage: 1 DF, ONCE/SINGLE, ORAL
     Route: 048
     Dates: start: 20090607, end: 20090607

REACTIONS (7)
  - ANXIETY [None]
  - DRUG HYPERSENSITIVITY [None]
  - DYSPNOEA [None]
  - FEAR [None]
  - FEELING ABNORMAL [None]
  - INSOMNIA [None]
  - PHARYNGEAL OEDEMA [None]
